FAERS Safety Report 21030931 (Version 3)
Quarter: 2022Q3

REPORT INFORMATION
  Report Type: Report from Study
  Country: MX (occurrence: MX)
  Receive Date: 20220701
  Receipt Date: 20220725
  Transmission Date: 20221027
  Serious: Yes (Hospitalization, Other)
  Sender: FDA-Public Use
  Company Number: MX-NOVARTISPH-NVSC2022MX148239

PATIENT
  Age: 30 Year
  Sex: Female
  Weight: 48.5 kg

DRUGS (4)
  1. COSENTYX [Suspect]
     Active Substance: SECUKINUMAB
     Indication: Product used for unknown indication
     Dosage: UNK
     Route: 058
     Dates: start: 20171006
  2. ADALIMUMAB [Concomitant]
     Active Substance: ADALIMUMAB
     Indication: Psoriasis
     Dosage: 40 MG
     Route: 058
     Dates: start: 20171006
  3. MEROPENEM [Concomitant]
     Active Substance: MEROPENEM
     Indication: Product used for unknown indication
     Dosage: 1 G (EACH 12 HOURS)
     Route: 042
     Dates: start: 20210410, end: 20210413
  4. ERTAPENEM [Concomitant]
     Active Substance: ERTAPENEM
     Indication: Product used for unknown indication
     Dosage: 1 G (EACH 24 HOURS)
     Route: 042
     Dates: start: 20210413, end: 20210420

REACTIONS (1)
  - Escherichia urinary tract infection [Recovered/Resolved]

NARRATIVE: CASE EVENT DATE: 20210410
